FAERS Safety Report 6285391-1 (Version None)
Quarter: 2009Q3

REPORT INFORMATION
  Report Type: 
  Country: None (occurrence: None)
  Receive Date: 20090723
  Receipt Date: 20090714
  Transmission Date: 20100115
  Serious: Yes (Other)
  Sender: FDA-Public Use
  Company Number: SPV1-2009-01459

PATIENT
  Sex: Female

DRUGS (1)
  1. FOSRENOL [Suspect]

REACTIONS (1)
  - HEPATIC ENZYME INCREASED [None]
